FAERS Safety Report 11753974 (Version 1)
Quarter: 2015Q4

REPORT INFORMATION
  Report Type: Spontaneous
  Country: PL (occurrence: PL)
  Receive Date: 20151119
  Receipt Date: 20151119
  Transmission Date: 20160304
  Serious: Yes (Life-Threatening)
  Sender: FDA-Public Use
  Company Number: PL-TEVA-609353ACC

PATIENT
  Age: 30 Year
  Sex: Male
  Weight: 74 kg

DRUGS (4)
  1. DACARBAZIN TEVA [Suspect]
     Active Substance: DACARBAZINE
     Indication: HODGKIN^S DISEASE
     Dosage: DOSE: 723; DOSE UNIT: NOT SPECIFIED
     Route: 042
     Dates: start: 20140630, end: 20140630
  2. BLEOMEDAC [Suspect]
     Active Substance: BLEOMYCIN SULFATE
     Indication: HODGKIN^S DISEASE
     Dosage: DOSE: 19; DOSE UNIT: NOT SPECIFIED
     Route: 042
     Dates: start: 20140630, end: 20140630
  3. DOXORUBICIN EBEWE [Suspect]
     Active Substance: DOXORUBICIN
     Indication: HODGKIN^S DISEASE
     Dosage: DOSE: 48; DOSE UNIT: NOT SPECIFIED
     Route: 042
     Dates: start: 20140630, end: 20140630
  4. VINBLASTIN RICHTER [Suspect]
     Active Substance: VINBLASTINE SULFATE
     Indication: HODGKIN^S DISEASE
     Dosage: DOSE: 10; DOSE UNIT: NOT SPECIFIED
     Route: 042
     Dates: start: 20140630, end: 20140630

REACTIONS (1)
  - Neutropenia [Unknown]

NARRATIVE: CASE EVENT DATE: 20140707
